FAERS Safety Report 24414488 (Version 3)
Quarter: 2024Q4

REPORT INFORMATION
  Report Type: Spontaneous
  Country: IN (occurrence: IN)
  Receive Date: 20241009
  Receipt Date: 20241023
  Transmission Date: 20250115
  Serious: Yes (Hospitalization, Other)
  Sender: ACCORD
  Company Number: IN-Accord-450136

PATIENT
  Age: 5 Decade
  Sex: Male

DRUGS (1)
  1. TOPIRAMATE [Suspect]
     Active Substance: TOPIRAMATE
     Indication: Alcoholic seizure
     Dosage: DRUG INTRODUCED ON DAY 8 OF ADMISSION AND STOPPED ON DAY 35

REACTIONS (1)
  - Eosinophilic pneumonia acute [Recovered/Resolved]
